FAERS Safety Report 18813245 (Version 1)
Quarter: 2021Q1

REPORT INFORMATION
  Report Type: Spontaneous
  Country: CA (occurrence: CA)
  Receive Date: 20210131
  Receipt Date: 20210131
  Transmission Date: 20210419
  Serious: Yes (Life-Threatening, Hospitalization, Other)
  Sender: FDA-Public Use
  Company Number: CA-AUROBINDO-AUR-APL-2021-003516

PATIENT
  Age: 5 Week
  Sex: Female

DRUGS (4)
  1. VENLAFAXINE EXTENDED RELEASE CAPSULE [Suspect]
     Active Substance: VENLAFAXINE HYDROCHLORIDE
     Indication: DEPRESSION
  2. VENLAFAXINE EXTENDED RELEASE CAPSULE [Suspect]
     Active Substance: VENLAFAXINE HYDROCHLORIDE
     Indication: ANXIETY
     Dosage: 150 MILLIGRAM, ONCE A DAY
     Route: 064
  3. MAGNESIUM SULFATE. [Suspect]
     Active Substance: MAGNESIUM SULFATE
     Indication: PRE-ECLAMPSIA
     Dosage: 1 GRAM, EVERY HOUR
     Route: 064
  4. MAGNESIUM SULFATE. [Suspect]
     Active Substance: MAGNESIUM SULFATE
     Dosage: 4 GRAM
     Route: 064

REACTIONS (9)
  - Bradypnoea [Recovered/Resolved]
  - Mechanical ventilation [Recovered/Resolved]
  - Foetal exposure timing unspecified [Recovered/Resolved]
  - Hypoventilation neonatal [Recovered/Resolved]
  - Endotracheal intubation [Recovered/Resolved]
  - Altered state of consciousness [Recovered/Resolved]
  - Respiratory distress [Recovered/Resolved]
  - Acidosis [Recovered/Resolved]
  - Resuscitation [Recovered/Resolved]
